FAERS Safety Report 23458903 (Version 1)
Quarter: 2024Q1

REPORT INFORMATION
  Report Type: Report from Study
  Country: ES (occurrence: ES)
  Receive Date: 20240131
  Receipt Date: 20240131
  Transmission Date: 20240410
  Serious: Yes (Hospitalization)
  Sender: FDA-Public Use
  Company Number: ES-ABBVIE-5605410

PATIENT
  Age: 78 Year
  Sex: Male

DRUGS (2)
  1. CARBIDOPA\LEVODOPA [Suspect]
     Active Substance: CARBIDOPA\LEVODOPA
     Indication: Parkinson^s disease
     Route: 050
     Dates: start: 20170525, end: 202312
  2. CARBIDOPA\LEVODOPA [Suspect]
     Active Substance: CARBIDOPA\LEVODOPA
     Dosage: MORNING DOSE DECREASED
     Route: 050
     Dates: start: 202312

REACTIONS (3)
  - Hypersexuality [Not Recovered/Not Resolved]
  - Nervousness [Not Recovered/Not Resolved]
  - Libido increased [Not Recovered/Not Resolved]

NARRATIVE: CASE EVENT DATE: 20240101
